FAERS Safety Report 19465833 (Version 1)
Quarter: 2021Q2

REPORT INFORMATION
  Report Type: Spontaneous
  Country: US (occurrence: US)
  Receive Date: 20210625
  Receipt Date: 20210625
  Transmission Date: 20210717
  Serious: No
  Sender: FDA-Public Use
  Company Number: US-AMGEN-USASP2021096400

PATIENT
  Age: 60 Year
  Sex: Female

DRUGS (1)
  1. EVENITY [Suspect]
     Active Substance: ROMOSOZUMAB-AQQG
     Indication: PRODUCT USED FOR UNKNOWN INDICATION
     Dosage: UNK
     Route: 058
     Dates: start: 20210618

REACTIONS (3)
  - Injection site pain [Recovered/Resolved]
  - Injection site erythema [Recovered/Resolved]
  - Injection site induration [Recovered/Resolved]

NARRATIVE: CASE EVENT DATE: 20210618
